FAERS Safety Report 5308008-9 (Version None)
Quarter: 2007Q2

REPORT INFORMATION
  Report Type: 
  Country: None (occurrence: None)
  Receive Date: 20070426
  Receipt Date: 20070416
  Transmission Date: 20071010
  Serious: Yes (Hospitalization, Other)
  Sender: FDA-Public Use
  Company Number: FR-JNJFOC-20070304383

PATIENT
  Age: 57 Year
  Sex: Male
  Weight: 90 kg

DRUGS (5)
  1. REMICADE [Suspect]
     Route: 042
  2. REMICADE [Suspect]
     Route: 042
  3. REMICADE [Suspect]
     Indication: PSORIASIS
     Route: 042
  4. PERFALGAN [Concomitant]
     Indication: PREMEDICATION
     Route: 042
  5. POLARAMINE [Concomitant]
     Indication: PREMEDICATION
     Dosage: 1 AMPULE
     Route: 042

REACTIONS (10)
  - BRADYCARDIA [None]
  - COUGH [None]
  - DYSPHONIA [None]
  - FORMICATION [None]
  - HYPERHIDROSIS [None]
  - HYPOTENSION [None]
  - INFUSION RELATED REACTION [None]
  - MALAISE [None]
  - PARAESTHESIA [None]
  - PHARYNGOLARYNGEAL PAIN [None]
